FAERS Safety Report 19027684 (Version 1)
Quarter: 2021Q1

REPORT INFORMATION
  Report Type: Report from Study
  Country: US (occurrence: US)
  Receive Date: 20210319
  Receipt Date: 20210319
  Transmission Date: 20210420
  Serious: Yes (Death, Other)
  Sender: FDA-Public Use
  Company Number: US-ACADIA PHARMACEUTICALS INC.-ACA-2021-PIM-000765

PATIENT
  Sex: Male

DRUGS (17)
  1. LOSARTAN. [Concomitant]
     Active Substance: LOSARTAN
     Dosage: 1 TABLET EVERY DAY
     Route: 048
  2. QUETIAPINE. [Concomitant]
     Active Substance: QUETIAPINE
     Dosage: 1 TABLET TWICE A DAY
     Route: 048
  3. AMMONIUM LACTATE. [Concomitant]
     Active Substance: AMMONIUM LACTATE
     Dosage: 12% TOPOCAL CREAM APPLY TO AFFECTED AREA TWICE A DAY
     Route: 061
  4. DOCUSATE SODIUM. [Concomitant]
     Active Substance: DOCUSATE SODIUM
     Dosage: 2 CAPSULE AT BEDTIME
     Route: 048
  5. FUROSEMIDE. [Concomitant]
     Active Substance: FUROSEMIDE
     Dosage: 1 TABLET EVERY DAY
     Route: 048
  6. STOOL SOFTENER (DOCUSATE) [Concomitant]
     Active Substance: DOCUSATE
  7. CLONAZEPAM. [Concomitant]
     Active Substance: CLONAZEPAM
     Dosage: 1 TABLET TO DISSOLVE TWICE A DAY
     Route: 048
  8. RENA?VITE [Concomitant]
     Active Substance: ASCORBIC ACID\BIOTIN\CALCIUM PANTOTHENATE\CYANOCOBALAMIN\FOLIC ACID\NIACINAMIDE\PYRIDOXINE HYDROCHLORIDE\RIBOFLAVIN\THIAMINE MONONITRATE
     Dosage: 0.8 MG 1 TABLET EVERY DAY
     Route: 048
  9. SPS [Concomitant]
     Active Substance: SODIUM POLYSTYRENE SULFONATE
     Dosage: 15?20 GRAM/60ML
     Route: 048
  10. CLOTRIMAZOLE. [Concomitant]
     Active Substance: CLOTRIMAZOLE
     Dosage: 1% SOLUTION APPLY TO AFFECTED AREA TWICE A DAY
     Route: 061
  11. SENNA LAXATIVE [Concomitant]
     Active Substance: SENNOSIDES
     Dosage: 2 TABLET AT BEDTIME
     Route: 048
  12. METFORMIN [Concomitant]
     Active Substance: METFORMIN HYDROCHLORIDE
  13. NUPLAZID [Suspect]
     Active Substance: PIMAVANSERIN TARTRATE
     Indication: PARKINSON^S DISEASE
     Dosage: 34 MILLIGRAM, QD
     Route: 048
     Dates: start: 201811, end: 20210209
  14. ZONISAMIDE. [Concomitant]
     Active Substance: ZONISAMIDE
     Dosage: 1 CAPSULE TWICE A DAY
     Route: 048
  15. VITAMIN D2 [Concomitant]
     Active Substance: ERGOCALCIFEROL
     Dosage: 50000 UNIT, 1 CAPSULE ONE TIME/WEEK
     Route: 048
  16. AMLODIPINE [Concomitant]
     Active Substance: AMLODIPINE BESYLATE
     Dosage: 1 TABLET EVERY DAY
     Route: 048
  17. MELATONIN [Concomitant]
     Active Substance: MELATONIN

REACTIONS (1)
  - Respiratory failure [Recovered/Resolved]
